FAERS Safety Report 7629315-0 (Version None)
Quarter: 2011Q3

REPORT INFORMATION
  Report Type: 
  Country: None (occurrence: None)
  Receive Date: 20110722
  Receipt Date: 20110714
  Transmission Date: 20111222
  Serious: Yes (Hospitalization)
  Sender: FDA-Public Use
  Company Number: US-US-EMD SERONO, INC.-7056232

PATIENT
  Sex: Female

DRUGS (9)
  1. UNSPECIFIED BLOOD PRESSURE MEDICATION [Concomitant]
     Indication: BLOOD PRESSURE
  2. ACETAMINOPHEN [Concomitant]
     Indication: HEADACHE
  3. MOTRIN [Concomitant]
     Indication: PAIN
  4. CYCLOBENZAPRINE [Concomitant]
     Indication: MULTIPLE SCLEROSIS
  5. REBIF [Suspect]
  6. ACETAMINOPHEN [Concomitant]
     Indication: PAIN
  7. REBIF [Suspect]
     Indication: MULTIPLE SCLEROSIS
     Route: 058
     Dates: start: 20110111
  8. MOTRIN [Concomitant]
     Indication: HEADACHE
  9. ACETAMINOPHEN [Concomitant]
     Indication: PYREXIA

REACTIONS (3)
  - INJECTION SITE URTICARIA [None]
  - INJECTION SITE PAIN [None]
  - ASTHENIA [None]
